FAERS Safety Report 15619932 (Version 1)
Quarter: 2018Q4

REPORT INFORMATION
  Report Type: Report from Study
  Country: US (occurrence: US)
  Receive Date: 20181115
  Receipt Date: 20181115
  Transmission Date: 20190205
  Serious: Yes (Death, Life-Threatening, Hospitalization)
  Sender: FDA-Public Use
  Company Number: US-TEVA-2018-US-975298

PATIENT
  Age: 53 Year
  Sex: Male

DRUGS (6)
  1. DEXTROPROPOXYPHENE [Suspect]
     Active Substance: PROPOXYPHENE HYDROCHLORIDE
     Route: 048
  2. MODAFINIL. [Suspect]
     Active Substance: MODAFINIL
     Route: 048
  3. METOPROLOL. [Suspect]
     Active Substance: METOPROLOL
     Route: 048
  4. LOVASTATIN. [Suspect]
     Active Substance: LOVASTATIN
     Route: 048
  5. AMLODIPINE [Suspect]
     Active Substance: AMLODIPINE BESYLATE
     Route: 048
  6. PARACETAMOL [Suspect]
     Active Substance: ACETAMINOPHEN
     Route: 048

REACTIONS (3)
  - Cardiac arrest [Fatal]
  - Toxicity to various agents [Unknown]
  - Overdose [Unknown]

NARRATIVE: CASE EVENT DATE: 2010
